FAERS Safety Report 5362451-0 (Version None)
Quarter: 2007Q2

REPORT INFORMATION
  Report Type: 
  Country: None (occurrence: None)
  Receive Date: 20070619
  Receipt Date: 20070608
  Transmission Date: 20071010
  Serious: Yes (Other)
  Sender: FDA-Public Use
  Company Number: BE-JNJFOC-20070602413

PATIENT
  Sex: Female
  Weight: 65 kg

DRUGS (4)
  1. TOPAMAX [Suspect]
     Indication: CAROTID ARTERY DISSECTION
     Route: 048
  2. TOPAMAX [Suspect]
     Indication: MIGRAINE PROPHYLAXIS
     Route: 048
  3. PLAVIX [Concomitant]
     Route: 048
  4. ELTHYRONE [Concomitant]
     Route: 048

REACTIONS (1)
  - RESTLESS LEGS SYNDROME [None]
